FAERS Safety Report 13104474 (Version 1)
Quarter: 2017Q1

REPORT INFORMATION
  Report Type: Spontaneous
  Country: GB (occurrence: GB)
  Receive Date: 20170111
  Receipt Date: 20170111
  Transmission Date: 20170428
  Serious: Yes (Life-Threatening, Hospitalization, Other)
  Sender: FDA-Public Use
  Company Number: GB-ELI_LILLY_AND_COMPANY-GB201701003233

PATIENT
  Age: 47 Year
  Sex: Male

DRUGS (9)
  1. DIAZEPAM. [Interacting]
     Active Substance: DIAZEPAM
     Indication: PRODUCT USED FOR UNKNOWN INDICATION
     Dosage: UNK, UNKNOWN
     Route: 065
  2. ALCOHOL. [Interacting]
     Active Substance: ALCOHOL
     Indication: PRODUCT USED FOR UNKNOWN INDICATION
     Dosage: 1.5 DF, SINGLE
     Route: 065
  3. OLANZAPINE. [Suspect]
     Active Substance: OLANZAPINE
     Indication: PRODUCT USED FOR UNKNOWN INDICATION
     Dosage: UNK, UNKNOWN
     Route: 065
  4. ZOPICLONE [Interacting]
     Active Substance: ZOPICLONE
     Indication: PRODUCT USED FOR UNKNOWN INDICATION
     Dosage: UNK, UNKNOWN
     Route: 065
  5. DIAZEPAM. [Interacting]
     Active Substance: DIAZEPAM
     Dosage: 420 MG, SINGLE
     Route: 065
  6. OLANZAPINE. [Interacting]
     Active Substance: OLANZAPINE
     Dosage: 1.16 G, SINGLE
     Route: 065
  7. VENLAFAXINE [Interacting]
     Active Substance: VENLAFAXINE HYDROCHLORIDE
     Indication: PRODUCT USED FOR UNKNOWN INDICATION
     Dosage: UNK, UNKNOWN
     Route: 065
  8. VENLAFAXINE [Interacting]
     Active Substance: VENLAFAXINE HYDROCHLORIDE
     Dosage: 11.7 G, SINGLE
     Route: 065
  9. ZOPICLONE [Interacting]
     Active Substance: ZOPICLONE
     Dosage: 735 MG, SINGLE
     Route: 065

REACTIONS (13)
  - Intentional overdose [Unknown]
  - Loss of consciousness [Unknown]
  - Coma scale abnormal [Unknown]
  - Gastric dilatation [Recovered/Resolved]
  - Abdominal distension [Recovered/Resolved]
  - Gastrointestinal motility disorder [Recovered/Resolved]
  - Electrocardiogram QT prolonged [Unknown]
  - Tachycardia [Unknown]
  - Acute kidney injury [Not Recovered/Not Resolved]
  - Body temperature increased [Unknown]
  - Multiple organ dysfunction syndrome [Recovered/Resolved]
  - Hypotension [Unknown]
  - Drug interaction [Unknown]
